FAERS Safety Report 8998107 (Version 1)
Quarter: 2013Q1

REPORT INFORMATION
  Report Type: Spontaneous
  Country: US (occurrence: US)
  Receive Date: 20130104
  Receipt Date: 20130104
  Transmission Date: 20140127
  Serious: Yes (Other)
  Sender: FDA-Public Use
  Company Number: US-009507513-1301USA000954

PATIENT
  Sex: Male

DRUGS (4)
  1. MONTELUKAST SODIUM [Suspect]
  2. GLUCOTROL [Suspect]
  3. BUDESONIDE [Suspect]
  4. BISOPROLOL [Suspect]

REACTIONS (3)
  - Sputum increased [Unknown]
  - Hypercholesterolaemia [Unknown]
  - Diabetes mellitus [Unknown]
